FAERS Safety Report 11414554 (Version 2)
Quarter: 2015Q3

REPORT INFORMATION
  Report Type: Spontaneous
  Country: US (occurrence: US)
  Receive Date: 20150825
  Receipt Date: 20150907
  Transmission Date: 20151125
  Serious: Yes (Other)
  Sender: FDA-Public Use
  Company Number: US-009507513-1508USA009572

PATIENT
  Age: 56 Year
  Sex: Male
  Weight: 86.4 kg

DRUGS (2)
  1. VICTRELIS [Suspect]
     Active Substance: BOCEPREVIR
     Indication: HEPATITIS C
     Dosage: 800 MG, 4 CAPSULES THRICE A DAY WITH FOOD
     Route: 048
     Dates: start: 20111116, end: 20120223
  2. PEGINTERFERON (UNSPECIFIED) [Suspect]
     Active Substance: PEGINTERFERON ALFA-2A OR PEGINTERFERON ALFA-2B
     Indication: HEPATITIS C
     Dosage: 0.5 ML, 1 INJECTION UNDER THE SKIN, ONCE A WEEK
     Route: 058
     Dates: start: 20111026, end: 20120223

REACTIONS (1)
  - Thrombocytopenia [Not Recovered/Not Resolved]

NARRATIVE: CASE EVENT DATE: 20120223
